FAERS Safety Report 5024993-7 (Version None)
Quarter: 2006Q2

REPORT INFORMATION
  Report Type: 
  Country: None (occurrence: None)
  Receive Date: 20060607
  Receipt Date: 20060530
  Transmission Date: 20061013
  Serious: Yes (Life-Threatening, Other)
  Sender: FDA-Public Use
  Company Number: 2006-03-1634

PATIENT
  Sex: Female
  Weight: 45 kg

DRUGS (1)
  1. AERIUS (DESLORATADINE) TABLETS [Suspect]
     Indication: RHINITIS ALLERGIC
     Dosage: 5 MG QD ORAL
     Route: 048
     Dates: start: 20060101, end: 20060322

REACTIONS (9)
  - BUNDLE BRANCH BLOCK [None]
  - BUNDLE BRANCH BLOCK RIGHT [None]
  - CARDIOTOXICITY [None]
  - FATIGUE [None]
  - NAUSEA [None]
  - SINUS TACHYCARDIA [None]
  - STRESS [None]
  - SUPRAVENTRICULAR EXTRASYSTOLES [None]
  - SUPRAVENTRICULAR TACHYCARDIA [None]
